FAERS Safety Report 9245212 (Version 1)
Quarter: 2013Q2

REPORT INFORMATION
  Report Type: Spontaneous
  Country: IT (occurrence: IT)
  Receive Date: 20130422
  Receipt Date: 20130422
  Transmission Date: 20140414
  Serious: No
  Sender: FDA-Public Use
  Company Number: IT-BRISTOL-MYERS SQUIBB COMPANY-18803650

PATIENT
  Age: 57 Year
  Sex: Female
  Weight: 53 kg

DRUGS (7)
  1. ERBITUX SOLN FOR INF [Suspect]
     Indication: COLON CANCER
     Route: 042
     Dates: start: 20121218, end: 20121227
  2. IRINOTECAN [Suspect]
     Indication: COLON CANCER
     Route: 042
     Dates: start: 20121218, end: 20121227
  3. FLUOROURACIL [Suspect]
     Indication: COLON CANCER
     Dosage: 18-27DEC12-536.4MG-9D?18-27DEC12-357.6MG-9D
     Route: 042
     Dates: start: 20121218, end: 20121227
  4. SOLDESAM [Concomitant]
     Indication: COLON CANCER
     Route: 042
     Dates: start: 20121218, end: 20121227
  5. RANIDIL [Concomitant]
     Indication: COLON CANCER
     Route: 042
     Dates: start: 20121218, end: 20121227
  6. ONDANSETRON [Concomitant]
     Indication: COLON CANCER
     Route: 042
     Dates: start: 20121218, end: 20121227
  7. LEVOFOLENE [Concomitant]
     Indication: COLON CANCER
     Route: 042
     Dates: start: 20121218, end: 20121227

REACTIONS (4)
  - Arthralgia [Recovering/Resolving]
  - Dizziness [Unknown]
  - Asthenia [Recovering/Resolving]
  - Diarrhoea [Unknown]
